FAERS Safety Report 19506542 (Version 8)
Quarter: 2023Q2

REPORT INFORMATION
  Report Type: Report from Study
  Country: CN (occurrence: CN)
  Receive Date: 20210708
  Receipt Date: 20230403
  Transmission Date: 20230722
  Serious: Yes (Hospitalization, Other)
  Sender: FDA-Public Use
  Company Number: NVSC2021CN152309

PATIENT
  Age: 60 Year
  Sex: Male
  Weight: 71 kg

DRUGS (8)
  1. CISPLATIN [Suspect]
     Active Substance: CISPLATIN
     Indication: B-cell lymphoma
     Dosage: 181 MG, ONCE
     Route: 042
     Dates: start: 20210602
  2. CISPLATIN [Suspect]
     Active Substance: CISPLATIN
     Dosage: 134 MG
     Route: 042
     Dates: start: 20210626
  3. RITUXIMAB [Suspect]
     Active Substance: RITUXIMAB
     Indication: B-cell lymphoma
     Dosage: 678.8 MG, ONCE
     Route: 065
     Dates: start: 20210601
  4. RITUXIMAB [Suspect]
     Active Substance: RITUXIMAB
     Dosage: 375MG/M 671.3MG ON DAY 0
     Route: 065
     Dates: start: 20210626
  5. CYTARABINE [Suspect]
     Active Substance: CYTARABINE
     Indication: B-cell lymphoma
     Dosage: 7240 MG, BID
     Route: 042
     Dates: start: 20210603
  6. CYTARABINE [Suspect]
     Active Substance: CYTARABINE
     Dosage: 3580 MG, Q12H
     Route: 042
     Dates: start: 20210626
  7. DEXAMETHASONE SODIUM PHOSPHATE [Concomitant]
     Active Substance: DEXAMETHASONE SODIUM PHOSPHATE
     Indication: Prophylaxis
     Dosage: UNK
     Route: 065
     Dates: start: 20210706, end: 20210706
  8. HAEMOCOAGULASE [Concomitant]
     Indication: Haemorrhage prophylaxis
     Dosage: UNK
     Route: 042

REACTIONS (2)
  - Thrombocytopenia [Recovered/Resolved]
  - Thrombocytopenia [Recovered/Resolved]

NARRATIVE: CASE EVENT DATE: 20210705
